FAERS Safety Report 5237177-4 (Version None)
Quarter: 2007Q1

REPORT INFORMATION
  Report Type: 
  Country: None (occurrence: None)
  Receive Date: 20061208
  Receipt Date: 20050323
  Transmission Date: 20070707
  Serious: Yes (Other)
  Sender: FDA-Public Use
  Company Number: 2005UW04595

PATIENT
  Age: 60 Year
  Sex: Female
  Weight: 58.967 kg

DRUGS (12)
  1. CRESTOR [Suspect]
     Indication: BLOOD CHOLESTEROL INCREASED
     Dosage: 10 MG PO
     Route: 048
     Dates: start: 20050310
  2. CYTOTEC [Concomitant]
  3. DICYCLOMINE [Concomitant]
  4. NEURONTIN [Concomitant]
  5. IMDUR [Concomitant]
  6. HYDROCHLOROTHIAZIDE [Concomitant]
  7. PRINIVIL [Concomitant]
  8. REQUIP [Concomitant]
  9. PRILOSEC [Concomitant]
  10. GEMFIBROZIL [Concomitant]
  11. WELLBUTRIN [Concomitant]
  12. TOPROL-XL [Concomitant]

REACTIONS (3)
  - BALANCE DISORDER [None]
  - FATIGUE [None]
  - TREMOR [None]
